FAERS Safety Report 26127074 (Version 2)
Quarter: 2025Q4

REPORT INFORMATION
  Report Type: Report from Study
  Country: EU (occurrence: EU)
  Receive Date: 20251205
  Receipt Date: 20251223
  Transmission Date: 20260118
  Serious: Yes (Hospitalization)
  Sender: EISAI
  Company Number: EU-009507513-2357014

PATIENT
  Age: 67 Year
  Sex: Male

DRUGS (2)
  1. LENVATINIB [Suspect]
     Active Substance: LENVATINIB
     Indication: Small cell lung cancer extensive stage
     Dosage: FREQUENCY UNKNOWN
     Route: 048
     Dates: start: 20240118, end: 20251125
  2. PEMBROLIZUMAB [Suspect]
     Active Substance: PEMBROLIZUMAB
     Indication: Small cell lung cancer extensive stage
     Dosage: FREQUENCY UNKNOWN
     Route: 042
     Dates: start: 20231011, end: 20251009

REACTIONS (1)
  - Myocardial infarction [Recovered/Resolved]

NARRATIVE: CASE EVENT DATE: 20251126
